FAERS Safety Report 13641687 (Version 1)
Quarter: 2017Q2

REPORT INFORMATION
  Report Type: Spontaneous
  Country: US (occurrence: US)
  Receive Date: 20170611
  Receipt Date: 20170611
  Transmission Date: 20170830
  Serious: Yes (Other)
  Sender: FDA-Public Use
  Company Number: None

PATIENT
  Age: 47 Year
  Sex: Female
  Weight: 121.5 kg

DRUGS (2)
  1. CREST PRO-HEALTH CLINICAL [Suspect]
     Active Substance: CETYLPYRIDINIUM CHLORIDE
     Indication: GINGIVITIS
     Dosage: ?          OTHER STRENGTH:TEAPOONS;QUANTITY:4 TEASPOON(S);OTHER ROUTE:RINSE +SPIT OUT?
     Dates: start: 20170610, end: 20170610
  2. CREST PRO-HEALTH CLINICAL [Suspect]
     Active Substance: CETYLPYRIDINIUM CHLORIDE
     Indication: OROPHARYNGEAL PLAQUE
     Dosage: ?          OTHER STRENGTH:TEAPOONS;QUANTITY:4 TEASPOON(S);OTHER ROUTE:RINSE +SPIT OUT?
     Dates: start: 20170610, end: 20170610

REACTIONS (6)
  - Swelling face [None]
  - Lip swelling [None]
  - Gingival swelling [None]
  - Paraesthesia oral [None]
  - Local swelling [None]
  - Ageusia [None]

NARRATIVE: CASE EVENT DATE: 20170610
